FAERS Safety Report 9106450 (Version 1)
Quarter: 2013Q1

REPORT INFORMATION
  Report Type: Spontaneous
  Country: US (occurrence: US)
  Receive Date: 20130221
  Receipt Date: 20130221
  Transmission Date: 20140127
  Serious: No
  Sender: FDA-Public Use
  Company Number: US-PFIZER INC-2013065782

PATIENT
  Sex: Female

DRUGS (2)
  1. CHANTIX [Suspect]
     Indication: SMOKING CESSATION THERAPY
     Dosage: 0.5 MG, 1X/DAY
     Route: 048
     Dates: start: 201212
  2. CHANTIX [Suspect]
     Dosage: 1 MG, 1X/DAY
     Route: 048
     Dates: start: 2013, end: 20130215

REACTIONS (1)
  - Cough [Not Recovered/Not Resolved]
